FAERS Safety Report 4659721-8 (Version None)
Quarter: 2005Q2

REPORT INFORMATION
  Report Type: 
  Country: None (occurrence: None)
  Receive Date: 20050413
  Receipt Date: 20040721
  Transmission Date: 20051028
  Serious: Yes (Hospitalization)
  Sender: FDA-Public Use
  Company Number: 2004-BP-05967BP

PATIENT
  Sex: Male

DRUGS (2)
  1. MOBIC [Suspect]
     Indication: OSTEOARTHRITIS
     Dosage: 15 MG (7.5 MG, 1 BID) PO
     Route: 048
     Dates: end: 20040617
  2. MOBIC [Suspect]
     Indication: PAIN IN EXTREMITY
     Dosage: 15 MG (7.5 MG, 1 BID) PO
     Route: 048
     Dates: end: 20040617

REACTIONS (2)
  - BLOOD PRESSURE INCREASED [None]
  - SYNCOPE [None]
